FAERS Safety Report 25067256 (Version 5)
Quarter: 2025Q4

REPORT INFORMATION
  Report Type: Spontaneous
  Country: US (occurrence: US)
  Receive Date: 20250312
  Receipt Date: 20251106
  Transmission Date: 20260118
  Serious: Yes (Hospitalization, Other)
  Sender: MARINUS PHARMACEUTICALS
  Company Number: US-MARINUS PHARMACEUTICALS, INC.-MAR2025000036

PATIENT

DRUGS (8)
  1. ZTALMY [Suspect]
     Active Substance: GANAXOLONE
     Indication: CDKL5 deficiency disorder
     Dosage: 6.5 MILLILITER, TID
     Route: 048
     Dates: start: 20220824
  2. ZTALMY [Suspect]
     Active Substance: GANAXOLONE
     Dosage: 7.5 MILLILITER, TID
  3. CLOBAZAM [Concomitant]
     Active Substance: CLOBAZAM
     Indication: Seizure
     Dosage: 6 MILLILITER, BID
     Route: 048
     Dates: start: 20241008, end: 20250225
  4. PHENOBARBITAL [Concomitant]
     Active Substance: PHENOBARBITAL
     Indication: Seizure
     Dosage: 9 MILLILITER, BID
     Route: 048
     Dates: start: 20241008, end: 20250225
  5. LEVETIRACETAM [Concomitant]
     Active Substance: LEVETIRACETAM
     Indication: Seizure
     Dosage: 6 MILLILITER, BID
     Route: 048
     Dates: start: 20241008, end: 20250225
  6. VALTOCO [Concomitant]
     Active Substance: DIAZEPAM
     Indication: Seizure
     Dosage: UNK5 MG/ 1 SPRAY PRN SEIZURE MORE THAN 3 MINUTES OR CLUSTERS OF SEIZURES
     Route: 045
     Dates: start: 20241226
  7. MIRALAX [Concomitant]
     Active Substance: POLYETHYLENE GLYCOL 3350
     Indication: Product used for unknown indication
     Dosage: UNKTAKE (17G) BY ORAL ROUTE EVERY DAY MIXED WITH 8 OZ. WATER, JUICE, SODA, COFFEE OR TEA
     Route: 065
     Dates: start: 20181023
  8. POLYETHYLENE GLYCOL 3350 [Concomitant]
     Active Substance: POLYETHYLENE GLYCOL 3350
     Indication: Product used for unknown indication
     Dosage: 17 GRAM, QD

REACTIONS (3)
  - COVID-19 [Recovered/Resolved]
  - Seizure [Not Recovered/Not Resolved]
  - Obstructive sleep apnoea syndrome [Recovered/Resolved]

NARRATIVE: CASE EVENT DATE: 20250128
